FAERS Safety Report 8173220-0 (Version None)
Quarter: 2012Q1

REPORT INFORMATION
  Report Type: 
  Country: None (occurrence: None)
  Receive Date: 20120229
  Receipt Date: 20110916
  Transmission Date: 20120608
  Serious: No
  Sender: FDA-Public Use
  Company Number: US-GLAXOSMITHKLINE-A0945523A

PATIENT
  Age: 61 Year
  Sex: Female

DRUGS (4)
  1. ATENOLOL [Concomitant]
     Route: 065
     Dates: start: 20080101
  2. GSK AUTOINJECTOR [Suspect]
     Indication: MIGRAINE
     Route: 058
     Dates: start: 20110910
  3. LISINOPRIL [Concomitant]
     Route: 065
     Dates: start: 20070101
  4. SUMATRIPTAN SUCCINATE [Suspect]
     Indication: MIGRAINE
     Route: 058

REACTIONS (2)
  - PRODUCT QUALITY ISSUE [None]
  - DRUG INEFFECTIVE [None]
